FAERS Safety Report 10771338 (Version 6)
Quarter: 2015Q3

REPORT INFORMATION
  Report Type: Report from Study
  Country: BE (occurrence: BE)
  Receive Date: 20150206
  Receipt Date: 20150706
  Transmission Date: 20151125
  Serious: Yes (Hospitalization)
  Sender: FDA-Public Use
  Company Number: BE-ABBVIE-14P-013-1279750-00

PATIENT
  Age: 78 Year
  Sex: Female

DRUGS (14)
  1. DUODOPA [Suspect]
     Active Substance: CARBIDOPA\LEVODOPA
     Dosage: AM 2.5ML, CD 1.9ML/H IN 16HRS, ND 1.2ML/H IN 8HRS, ED 1.5ML
     Route: 050
     Dates: start: 20141218, end: 20150428
  2. DUODOPA [Suspect]
     Active Substance: CARBIDOPA\LEVODOPA
     Dosage: UNKNOWN
     Route: 050
     Dates: start: 20141204, end: 20141219
  3. DUODOPA [Suspect]
     Active Substance: CARBIDOPA\LEVODOPA
     Dosage: AM = 2.5 ML, CD = 2 ML/H DURING 16H, ED = 2 ML, ND = 1.5 ML/H DURING 8H
     Route: 050
     Dates: start: 20150428, end: 20150518
  4. DUODOPA [Suspect]
     Active Substance: CARBIDOPA\LEVODOPA
     Indication: PARKINSON^S DISEASE
     Dosage: AM DOSE= 4ML, CD= 2.2ML/H DURING 16HRS, ED=1 ML
     Route: 050
     Dates: start: 20100531, end: 20100601
  5. DUODOPA [Suspect]
     Active Substance: CARBIDOPA\LEVODOPA
     Dosage: AM DOSE= 2.5ML, CD= 2.1ML/H DURING 16HRS, ED=1.2ML
     Route: 050
     Dates: start: 20140828, end: 20140924
  6. DUODOPA [Suspect]
     Active Substance: CARBIDOPA\LEVODOPA
     Dosage: AM DOSE=2.5ML, CD=2.4ML/H FOR 16HRS, ND=1.5ML/H FOR 8HRS AND
     Route: 050
     Dates: start: 20150622
  7. DUODOPA [Suspect]
     Active Substance: CARBIDOPA\LEVODOPA
     Dosage: DOSAGE CONTINUOUSLY MONITORED AND ADJUSTED
     Route: 050
     Dates: start: 20100601, end: 20140814
  8. DUODOPA [Suspect]
     Active Substance: CARBIDOPA\LEVODOPA
     Dosage: AM DOSE= 4ML, CD= 2.2ML/H DURING 16HRS, ED=1.2ML
     Route: 050
     Dates: start: 20140814, end: 20140828
  9. DUODOPA [Suspect]
     Active Substance: CARBIDOPA\LEVODOPA
     Dosage: AM DOSE= 2.5ML, CONTIN DOSE= 1.8ML/H DURING 16HRS, EXTRA DOSE=1.2ML
     Route: 050
     Dates: start: 20141026, end: 20141125
  10. DUODOPA [Suspect]
     Active Substance: CARBIDOPA\LEVODOPA
     Dosage: AM=2.5ML;CD=2.2ML/HR DURING 16HRS;ED=2ML; ND=1.5ML/HR DURING 8HRS
     Route: 050
     Dates: start: 20150518, end: 20150622
  11. DUODOPA [Suspect]
     Active Substance: CARBIDOPA\LEVODOPA
     Dosage: AM = 2.5 ML, CD = 1.9 ML/H DURING 16H, ED = 1.2 ML, ND = 1.5ML/H DURING 8H
     Route: 050
     Dates: start: 20141203, end: 20141204
  12. DUODOPA [Suspect]
     Active Substance: CARBIDOPA\LEVODOPA
     Dosage: AM DOSE= 2.5ML, CD= 2ML/H DURING 16HRS, ED= 1.2ML
     Route: 050
     Dates: start: 20140924, end: 20141013
  13. DUODOPA [Suspect]
     Active Substance: CARBIDOPA\LEVODOPA
     Dosage: AM DOSE= 2.5ML, CD= 1.9ML/H DURING 16HRS, ED=1.2ML
     Route: 050
     Dates: start: 20141013, end: 20141026
  14. DUODOPA [Suspect]
     Active Substance: CARBIDOPA\LEVODOPA
     Dosage: AM = 2.5 ML, CD = 1.7 ML/H DURING 16H, ED = 1.2 ML, ND = 1.5ML/H DURING 8H
     Route: 050
     Dates: start: 20141125, end: 20141203

REACTIONS (20)
  - Drug ineffective [Unknown]
  - Apathy [Recovering/Resolving]
  - Dyskinesia [Unknown]
  - Fatigue [Unknown]
  - Depressed mood [Unknown]
  - Unevaluable event [Unknown]
  - Hyperkinesia [Unknown]
  - Sleep disorder [Recovering/Resolving]
  - Depression [Recovering/Resolving]
  - Tremor [Recovering/Resolving]
  - Stoma site infection [Recovered/Resolved]
  - Confusional state [Unknown]
  - Stoma site discharge [Unknown]
  - On and off phenomenon [Recovering/Resolving]
  - Mobility decreased [Recovering/Resolving]
  - Incoherent [Unknown]
  - Emotional disorder [Unknown]
  - Malaise [Unknown]
  - Freezing phenomenon [Unknown]
  - Excessive granulation tissue [Unknown]

NARRATIVE: CASE EVENT DATE: 20150619
